FAERS Safety Report 19840718 (Version 1)
Quarter: 2021Q3

REPORT INFORMATION
  Report Type: Report from Study
  Country: ID (occurrence: ID)
  Receive Date: 20210916
  Receipt Date: 20210916
  Transmission Date: 20211014
  Serious: Yes (Hospitalization, Other)
  Sender: FDA-Public Use
  Company Number: ID-ASTRAZENECA-2021A706313

PATIENT
  Sex: Female

DRUGS (1)
  1. LYNPARZA [Suspect]
     Active Substance: OLAPARIB
     Indication: OVARIAN CANCER
     Route: 048
     Dates: start: 20210720

REACTIONS (5)
  - Loss of consciousness [Unknown]
  - Vomiting [Unknown]
  - Nausea [Unknown]
  - Syncope [Unknown]
  - Carbohydrate antigen 125 increased [Unknown]
